FAERS Safety Report 13277077 (Version 1)
Quarter: 2017Q1

REPORT INFORMATION
  Report Type: Spontaneous
  Country: US (occurrence: US)
  Receive Date: 20170228
  Receipt Date: 20170228
  Transmission Date: 20170428
  Serious: Yes (Hospitalization)
  Sender: FDA-Public Use
  Company Number: None

PATIENT
  Age: 54 Year
  Sex: Male
  Weight: 119.85 kg

DRUGS (13)
  1. LOW D ASPIRINE [Concomitant]
  2. MUSCLE MILK [Concomitant]
  3. CLONIDINE. [Concomitant]
     Active Substance: CLONIDINE
  4. AGELESS MALE [Concomitant]
  5. SLIM FAST [Concomitant]
  6. RISPERDAL [Suspect]
     Active Substance: RISPERIDONE
     Indication: DEPRESSION
     Dosage: ?          QUANTITY:DIX!;?
     Dates: start: 2005
  7. LITHIUM. [Suspect]
     Active Substance: LITHIUM
  8. POTASSIUM [Concomitant]
     Active Substance: POTASSIUM
  9. VITIMIN C [Concomitant]
  10. DEPAKOTE [Suspect]
     Active Substance: DIVALPROEX SODIUM
     Route: 048
  11. AMLODIPINE [Concomitant]
     Active Substance: AMLODIPINE BESYLATE
  12. PALIPERIDONE. [Suspect]
     Active Substance: PALIPERIDONE
  13. VITAMINS [Concomitant]
     Active Substance: VITAMINS

REACTIONS (3)
  - Therapy non-responder [None]
  - Unevaluable event [None]
  - Gastrointestinal disorder [None]

NARRATIVE: CASE EVENT DATE: 20170208
